FAERS Safety Report 4655982-X (Version None)
Quarter: 2005Q2

REPORT INFORMATION
  Report Type: 
  Country: None (occurrence: None)
  Receive Date: 20050506
  Receipt Date: 20050506
  Transmission Date: 20051028
  Serious: Yes (Death)
  Sender: FDA-Public Use
  Company Number: None

PATIENT
  Age: 15 Year
  Sex: Male
  Weight: 50.8 kg

DRUGS (5)
  1. MYLOTARG [Suspect]
     Indication: ACUTE MYELOID LEUKAEMIA
     Dosage: 12.5 MG, 1 DOSE, INFUSION LINE
     Dates: start: 20050316
  2. CYTARABINE [Suspect]
     Dosage: SEE IMAGE
     Dates: start: 20050326, end: 20050328
  3. IMMUNE GLOBULIN (HUMAN) [Concomitant]
  4. LIPOSOMAL AMPHOTERICIN [Concomitant]
  5. VORICONAZOLE [Concomitant]

REACTIONS (18)
  - ACUTE MYELOID LEUKAEMIA [None]
  - ACUTE RESPIRATORY DISTRESS SYNDROME [None]
  - ARRHYTHMIA [None]
  - BLOOD PRESSURE DECREASED [None]
  - BONE MARROW DISORDER [None]
  - CENTRAL LINE INFECTION [None]
  - DYSPNOEA [None]
  - MALIGNANT NEOPLASM PROGRESSION [None]
  - MALIGNANT PLEURAL EFFUSION [None]
  - NAUSEA [None]
  - PANCREATITIS [None]
  - PERICARDIAL EFFUSION MALIGNANT [None]
  - PLEURISY [None]
  - PULMONARY OEDEMA [None]
  - PYREXIA [None]
  - TACHYCARDIA [None]
  - VOMITING [None]
  - WHITE BLOOD CELL COUNT INCREASED [None]
